FAERS Safety Report 6276538-1 (Version None)
Quarter: 2009Q3

REPORT INFORMATION
  Report Type: 
  Country: None (occurrence: None)
  Receive Date: 20090722
  Receipt Date: 19940531
  Transmission Date: 20100115
  Serious: No
  Sender: FDA-Public Use
  Company Number: COU940771

PATIENT
  Age: 27 Year
  Sex: Female
  Weight: 48 kg

DRUGS (2)
  1. COUMADIN [Suspect]
     Indication: PULMONARY EMBOLISM
     Route: 048
  2. NONE [Concomitant]
     Dosage: AES#DOSE_FREQUENCY: UNKNOWN
     Route: 065

REACTIONS (1)
  - PREGNANCY [None]
